FAERS Safety Report 12544363 (Version 1)
Quarter: 2016Q3

REPORT INFORMATION
  Report Type: Spontaneous
  Country: US (occurrence: US)
  Receive Date: 20160711
  Receipt Date: 20160711
  Transmission Date: 20161109
  Serious: No
  Sender: FDA-Public Use
  Company Number: US-PFIZER INC-2016305998

PATIENT
  Age: 48 Year
  Sex: Female
  Weight: 70.8 kg

DRUGS (1)
  1. ROCURONIUM BROMIDE. [Suspect]
     Active Substance: ROCURONIUM BROMIDE
     Indication: ANAESTHESIA
     Dosage: 5MG PRIOR TO INTUBATION, 10MG WHEN THE SURGERY BEGAN
     Route: 042
     Dates: start: 20160616, end: 20160616

REACTIONS (1)
  - Neuromuscular block prolonged [Recovered/Resolved]

NARRATIVE: CASE EVENT DATE: 20160616
